FAERS Safety Report 9161025 (Version 4)
Quarter: 2013Q2

REPORT INFORMATION
  Report Type: Spontaneous
  Country: US (occurrence: None)
  Receive Date: 20130215
  Receipt Date: 20130515
  Transmission Date: 20140414
  Serious: Yes (Other)
  Sender: FDA-Public Use
  Company Number: CIO13005821

PATIENT
  Age: 58 Year
  Sex: Female
  Weight: 57.1 kg

DRUGS (2)
  1. PRO-HEALTH CLINICAL ORAL RINSE [Suspect]
     Indication: DENTAL CARE
     Dosage: 1 MOUTHF, INTRAORAL
     Dates: start: 20130131, end: 20130131
  2. ZANTAC (RANITIDINE) [Concomitant]

REACTIONS (17)
  - Choking sensation [None]
  - Swelling face [None]
  - Oral discomfort [None]
  - Lip swelling [None]
  - Hypoaesthesia oral [None]
  - Pruritus generalised [None]
  - Oedema mouth [None]
  - Throat irritation [None]
  - Cheilitis [None]
  - Oedema peripheral [None]
  - Skin tightness [None]
  - Hypoaesthesia [None]
  - Urticaria [None]
  - Gingival pain [None]
  - Cheilitis [None]
  - Erythema [None]
  - Throat irritation [None]
